FAERS Safety Report 9974118 (Version 1)
Quarter: 2014Q1

REPORT INFORMATION
  Report Type: Spontaneous
  Country: US (occurrence: US)
  Receive Date: 20140306
  Receipt Date: 20140306
  Transmission Date: 20141002
  Serious: Yes (Other)
  Sender: FDA-Public Use
  Company Number: US-GLAXOSMITHKLINE-A1063786A

PATIENT
  Age: 33 Year
  Sex: Male

DRUGS (1)
  1. ADVAIR [Suspect]
     Indication: ASTHMA
     Route: 055

REACTIONS (4)
  - Cardiac pacemaker insertion [Unknown]
  - Cardiac disorder [Unknown]
  - Asthma [Unknown]
  - Inhalation therapy [Unknown]
